FAERS Safety Report 6624586-1 (Version None)
Quarter: 2010Q1

REPORT INFORMATION
  Report Type: 
  Country: None (occurrence: None)
  Receive Date: 20100310
  Receipt Date: 20091002
  Transmission Date: 20100710
  Serious: No
  Sender: FDA-Public Use
  Company Number: US-BIOGENIDEC-2009BI031716

PATIENT
  Age: 67 Year
  Sex: Female

DRUGS (1)
  1. AVONEX [Suspect]
     Indication: MULTIPLE SCLEROSIS
     Route: 030
     Dates: end: 20090901

REACTIONS (6)
  - HERPES ZOSTER [None]
  - INFLUENZA LIKE ILLNESS [None]
  - ORAL HERPES [None]
  - ORAL PAIN [None]
  - OROPHARYNGEAL PAIN [None]
  - SWELLING FACE [None]
